FAERS Safety Report 4315524-5 (Version None)
Quarter: 2004Q1

REPORT INFORMATION
  Report Type: 
  Country: None (occurrence: None)
  Receive Date: 20040311
  Receipt Date: 20040304
  Transmission Date: 20041129
  Serious: Yes (Death)
  Sender: FDA-Public Use
  Company Number: PHBS2004JP03047

PATIENT
  Age: 87 Year
  Sex: Female

DRUGS (8)
  1. GLEEVEC [Suspect]
     Indication: GASTROINTESTINAL STROMAL TUMOUR
     Dosage: 400 MG/D
     Route: 048
     Dates: start: 20031120, end: 20031210
  2. DIOVAN [Concomitant]
     Dosage: 80 MG/D
     Route: 048
     Dates: start: 20031107, end: 20031210
  3. PARIET [Concomitant]
     Dosage: 10 MG/D
     Route: 048
     Dates: start: 20031110, end: 20031210
  4. CEROCRAL [Concomitant]
     Dosage: 40 MG/D
     Route: 048
     Dates: start: 20031107, end: 20031210
  5. CONIEL [Concomitant]
     Dosage: 4 MG/D
     Route: 048
     Dates: start: 20031107, end: 20031210
  6. TORSEMIDE [Concomitant]
     Dosage: 4 MG/D
     Route: 048
     Dates: start: 20031107, end: 20031110
  7. ULCERLMIN [Concomitant]
     Dosage: 3 G/D
     Route: 048
     Dates: start: 20031110, end: 20031210
  8. ALLOID [Concomitant]
     Dosage: 30 ML/D
     Route: 048
     Dates: start: 20031110, end: 20031210

REACTIONS (3)
  - CACHEXIA [None]
  - MALNUTRITION [None]
  - RESPIRATORY FAILURE [None]
